FAERS Safety Report 18145126 (Version 4)
Quarter: 2020Q3

REPORT INFORMATION
  Report Type: Spontaneous
  Country: US (occurrence: US)
  Receive Date: 20200813
  Receipt Date: 20200828
  Transmission Date: 20201103
  Serious: No
  Sender: FDA-Public Use
  Company Number: US-PFIZER INC-2020286595

PATIENT
  Age: 89 Year
  Sex: Female

DRUGS (1)
  1. EUCRISA [Suspect]
     Active Substance: CRISABOROLE
     Indication: ECZEMA
     Dosage: UNK, TO APPLY THIN LAYER TO ARMS BID (TWICE A DAY), UNTIL CLEAR
     Route: 061

REACTIONS (1)
  - Therapeutic product effect incomplete [Unknown]
